FAERS Safety Report 5941406-9 (Version None)
Quarter: 2008Q4

REPORT INFORMATION
  Report Type: 
  Country: None (occurrence: None)
  Receive Date: 20081031
  Receipt Date: 20081015
  Transmission Date: 20090506
  Serious: Yes (Hospitalization)
  Sender: FDA-Public Use
  Company Number: DSA_32520_2008

PATIENT
  Age: 55 Year
  Sex: Female

DRUGS (1)
  1. DICLOFENAC SODIUM [Suspect]
     Indication: DRUG USE FOR UNKNOWN INDICATION
     Dosage: (50 MG TID)

REACTIONS (5)
  - ABSCESS INTESTINAL [None]
  - ANASTOMOTIC LEAK [None]
  - CROHN'S DISEASE [None]
  - GASTROINTESTINAL ULCER [None]
  - INTESTINAL PERFORATION [None]
